FAERS Safety Report 7537763-2 (Version None)
Quarter: 2011Q2

REPORT INFORMATION
  Report Type: 
  Country: None (occurrence: None)
  Receive Date: 20110603
  Receipt Date: 20110526
  Transmission Date: 20111010
  Serious: Yes (Other)
  Sender: FDA-Public Use
  Company Number: 1000019140

PATIENT
  Age: 67 Year
  Sex: Female
  Weight: 66 kg

DRUGS (4)
  1. NEBIVOLOL HCL [Suspect]
     Indication: HYPERTENSION
     Dosage: 5 MG (5 MG, 1 IN 1 D), ORAL
     Route: 048
     Dates: start: 20110204, end: 20110228
  2. PRAZEPAM [Concomitant]
  3. TOPREC (KETOPROFEN) (KETOPROFEN) [Concomitant]
  4. RIVOTRIL (CLONAZEPAM) (CLONAZEPAM) [Concomitant]

REACTIONS (1)
  - HEPATITIS [None]
